FAERS Safety Report 23255815 (Version 2)
Quarter: 2023Q4

REPORT INFORMATION
  Report Type: Spontaneous
  Country: JP (occurrence: JP)
  Receive Date: 20231204
  Receipt Date: 20231219
  Transmission Date: 20240109
  Serious: Yes (Other)
  Sender: FDA-Public Use
  Company Number: JP-SA-2023SA368941

PATIENT
  Age: 64 Year
  Sex: Female

DRUGS (3)
  1. DOCETAXEL [Suspect]
     Active Substance: DOCETAXEL\DOCETAXEL ANHYDROUS
     Indication: Breast cancer stage IV
     Dosage: UNK
     Route: 065
  2. PERTUZUMAB [Concomitant]
     Active Substance: PERTUZUMAB
     Dosage: UNK
     Route: 065
  3. TRASTUZUMAB [Concomitant]
     Active Substance: TRASTUZUMAB
     Indication: Breast cancer stage IV
     Dosage: UNK
     Route: 065

REACTIONS (2)
  - Cardiac dysfunction [Unknown]
  - General physical health deterioration [Unknown]
